FAERS Safety Report 17531745 (Version 16)
Quarter: 2022Q1

REPORT INFORMATION
  Report Type: Report from Study
  Country: IT (occurrence: IT)
  Receive Date: 20200312
  Receipt Date: 20220221
  Transmission Date: 20220424
  Serious: Yes (Hospitalization)
  Sender: FDA-Public Use
  Company Number: IT-CELGENE-ITA-20200303640

PATIENT
  Age: 69 Year
  Sex: Male
  Weight: 72 kg

DRUGS (12)
  1. FEDRATINIB [Suspect]
     Active Substance: FEDRATINIB
     Indication: Myelofibrosis
     Dosage: 400 MG X 1 X 1 DAYS
     Route: 048
     Dates: start: 20200117, end: 20200221
  2. FEDRATINIB [Suspect]
     Active Substance: FEDRATINIB
     Dosage: 300 MG X 1 X 1 DAYS
     Route: 048
     Dates: start: 20200222, end: 20200222
  3. FEDRATINIB [Suspect]
     Active Substance: FEDRATINIB
     Dosage: 200 MG X 1 X 1 DAYS
     Route: 048
     Dates: start: 20200223, end: 20200227
  4. FEDRATINIB [Suspect]
     Active Substance: FEDRATINIB
     Dosage: 0 MG X 1 X 1 DAYS
     Route: 048
     Dates: start: 20200228, end: 20200311
  5. ACETYLSALILIC ACID [Concomitant]
     Indication: Thrombosis prophylaxis
     Dosage: 100 MG X INTERMITTENT
     Route: 048
     Dates: start: 2010
  6. ALLOPURINOLE [Concomitant]
     Indication: Prophylaxis
     Dosage: 300 MG X 1 X 1 DAYS
     Route: 048
     Dates: start: 20061018
  7. AMLODIPINE [Concomitant]
     Active Substance: AMLODIPINE BESYLATE
     Indication: Hypertension
     Dosage: 10 MG X 1 X 1 DAYS
     Route: 048
     Dates: start: 20200306
  8. DANAZOLE [Concomitant]
     Indication: Myelofibrosis
     Dosage: 200 MG X 1 X 1 DAYS
     Route: 048
     Dates: start: 20171207
  9. PANTOPRAZOLE [Concomitant]
     Active Substance: PANTOPRAZOLE
     Indication: Gastritis prophylaxis
     Dosage: 20 MG X 1 X 1 DAYS
     Route: 048
     Dates: start: 20170713
  10. URSODIOL [Concomitant]
     Active Substance: URSODIOL
     Indication: Cholelithiasis
     Dosage: 300 MG X 3 X 1 DAYS
     Route: 048
     Dates: start: 20200117, end: 20200227
  11. URSODIOL [Concomitant]
     Active Substance: URSODIOL
     Dosage: 150 MG X 1 X 1 DAYS
     Route: 048
     Dates: start: 20200228
  12. VALSARTAN [Concomitant]
     Active Substance: VALSARTAN
     Indication: Hypertension
     Dosage: 160 MG X 1 X 1 DAYS
     Route: 048
     Dates: start: 20200228

REACTIONS (1)
  - Acute kidney injury [Recovered/Resolved]

NARRATIVE: CASE EVENT DATE: 20200214
